FAERS Safety Report 12491096 (Version 1)
Quarter: 2016Q2

REPORT INFORMATION
  Report Type: Spontaneous
  Country: CH (occurrence: CH)
  Receive Date: 20160623
  Receipt Date: 20160623
  Transmission Date: 20160815
  Serious: Yes (Other)
  Sender: FDA-Public Use
  Company Number: CH-PAR PHARMACEUTICAL COMPANIES-2016SCPR015556

PATIENT

DRUGS (1)
  1. PITOCIN [Suspect]
     Active Substance: OXYTOCIN
     Indication: HAEMORRHAGE PROPHYLAXIS
     Dosage: 5 IU, BOLUS
     Route: 042

REACTIONS (1)
  - Retained placenta or membranes [Unknown]
